FAERS Safety Report 14448054 (Version 4)
Quarter: 2018Q1

REPORT INFORMATION
  Report Type: Report from Study
  Country: US (occurrence: US)
  Receive Date: 20180126
  Receipt Date: 20180222
  Transmission Date: 20180509
  Serious: Yes (Hospitalization)
  Sender: FDA-Public Use
  Company Number: US-PFIZER INC-2018033129

PATIENT
  Age: 45 Year
  Sex: Female
  Weight: 46 kg

DRUGS (24)
  1. DELTASONE [Suspect]
     Active Substance: PREDNISONE
     Dosage: 5 MG, ONCE DAILY
     Route: 048
     Dates: start: 20171126
  2. TRIAMCINOLONE [Concomitant]
     Active Substance: TRIAMCINOLONE
  3. MYFORTIC [Suspect]
     Active Substance: MYCOPHENOLATE SODIUM
     Dosage: 500 MG, TWICE DAILY
     Route: 048
     Dates: start: 20171127
  4. DELTASONE [Suspect]
     Active Substance: PREDNISONE
     Indication: IMMUNOSUPPRESSION
     Dosage: 7.5 MG, ONCE DAILY
     Route: 048
     Dates: start: 20171115, end: 20171126
  5. CIPROFLOXACIN HCL [Concomitant]
     Active Substance: CIPROFLOXACIN HYDROCHLORIDE
     Dosage: 250 MG, UNK
  6. MAGNESIUM OXIDE. [Concomitant]
     Active Substance: MAGNESIUM OXIDE
     Dosage: 400 MG, UNK
  7. LIDODERM [Concomitant]
     Active Substance: LIDOCAINE
     Dosage: 5 %, UNK
  8. MEPRON /00049601/ [Concomitant]
     Active Substance: METHYLPREDNISOLONE
     Dosage: UNK
  9. ZITHROMAX [Concomitant]
     Active Substance: AZITHROMYCIN DIHYDRATE
     Dosage: 250 MG, UNK
  10. TACROLIMUS. [Suspect]
     Active Substance: TACROLIMUS
     Dosage: CAPSULE, UNKNOWN FREQ
     Route: 048
  11. MYFORTIC [Suspect]
     Active Substance: MYCOPHENOLATE SODIUM
     Indication: IMMUNOSUPPRESSION
     Dosage: 750 MG, TWICE DAILY
     Route: 048
     Dates: start: 20170923, end: 20171126
  12. MYFORTIC [Suspect]
     Active Substance: MYCOPHENOLATE SODIUM
     Dosage: 180 MG, TWICE DAILY
     Route: 048
     Dates: start: 20171230, end: 20180103
  13. SYNTHROID [Concomitant]
     Active Substance: LEVOTHYROXINE SODIUM
     Dosage: 75 FEG
  14. LOPRESSOR [Concomitant]
     Active Substance: METOPROLOL TARTRATE
     Dosage: 360 MG, UNK
  15. TACROLIMUS. [Suspect]
     Active Substance: TACROLIMUS
     Dosage: CAPSULE, 2 MG, TWICE DAILY
     Route: 048
  16. TACROLIMUS. [Suspect]
     Active Substance: TACROLIMUS
     Dosage: CAPSULE, 4 MG, TWICE DAILY
     Route: 048
     Dates: start: 20170923
  17. MYFORTIC [Suspect]
     Active Substance: MYCOPHENOLATE SODIUM
     Dosage: 360 MG, TWICE DAILY
     Route: 048
     Dates: start: 20180104
  18. TERCONAZOLE. [Concomitant]
     Active Substance: TERCONAZOLE
     Dosage: 0.8 %, UNK
  19. VALCYTE [Concomitant]
     Active Substance: VALGANCICLOVIR HYDROCHLORIDE
     Dosage: 450 MG, UNK
  20. MAGONATE [Concomitant]
     Active Substance: MAGNESIUM CARBONATE
     Dosage: 500 MG, UNK
  21. NORVASC [Concomitant]
     Active Substance: AMLODIPINE BESYLATE
     Dosage: 5 MG, UNK
  22. ORALONE [Concomitant]
     Active Substance: TRIAMCINOLONE ACETONIDE
     Dosage: 0.1 %, UNK
  23. PRILOSEC [Concomitant]
     Active Substance: OMEPRAZOLE MAGNESIUM
     Dosage: 20 MG, UNK
  24. TYLENOL [Concomitant]
     Active Substance: ACETAMINOPHEN
     Dosage: 325 MG, UNK

REACTIONS (5)
  - Pyrexia [Recovered/Resolved]
  - Pneumonia [Recovered/Resolved]
  - Blood creatinine increased [Recovering/Resolving]
  - Nocardiosis [Recovering/Resolving]
  - Pericardial effusion [Recovered/Resolved]

NARRATIVE: CASE EVENT DATE: 20171123
